FAERS Safety Report 16803707 (Version 1)
Quarter: 2019Q3

REPORT INFORMATION
  Report Type: Spontaneous
  Country: PL (occurrence: PL)
  Receive Date: 20190913
  Receipt Date: 20190913
  Transmission Date: 20191005
  Serious: Yes (Hospitalization, Other)
  Sender: FDA-Public Use
  Company Number: PL-TEVA-2019-PL-1105824

PATIENT
  Age: 74 Year
  Sex: Male
  Weight: 75 kg

DRUGS (8)
  1. POLSEN [Concomitant]
     Active Substance: ZOLPIDEM TARTRATE
     Dosage: DOSE: UNKNOWN/ 7 DAYS
     Dates: start: 20160317, end: 20160324
  2. BISOCARD [Concomitant]
     Active Substance: BISOPROLOL
     Dosage: DOSE: UNKNOWN/ 7 DAYS
     Dates: start: 20160317, end: 20160324
  3. IMATYNIB (IMATINIB) [Suspect]
     Active Substance: IMATINIB
     Indication: NEOPLASM
     Dosage: DOSE: 400 MG PER DAY, IN THE III CYCLE OF THERAPY DOSE INCREASED TO 800 MG
     Route: 065
     Dates: start: 201406
  4. IMATYNIB (IMATINIB) [Suspect]
     Active Substance: IMATINIB
     Dosage: DOSE: 400 MG PER DAY, IN THE III CYCLE OF THERAPY DOSE INCREASED TO 800 MG
     Route: 065
  5. GLIVEC [Suspect]
     Active Substance: IMATINIB MESYLATE
     Dosage: 800MG/ 7 DAYS
     Route: 065
     Dates: start: 20160317, end: 20160324
  6. ASENTRA [Concomitant]
     Active Substance: SERTRALINE HYDROCHLORIDE
     Dosage: DOSE: UNKNOWN/ 7 DAYS
     Dates: start: 20160317, end: 20160324
  7. MILURIT [Concomitant]
     Active Substance: ALLOPURINOL
     Dosage: DOSE: UNKNOWN/ 7 DAYS
     Dates: start: 20160317, end: 20160324
  8. CO-PRESTARIUM [Concomitant]
     Active Substance: AMLODIPINE\PERINDOPRIL
     Dosage: DOSE: UNKNOWN/ 7 DAYS
     Dates: start: 20160317, end: 20160324

REACTIONS (12)
  - Neurological symptom [Recovering/Resolving]
  - Motor neurone disease [Recovering/Resolving]
  - Visual impairment [Recovering/Resolving]
  - Orthosis user [Recovering/Resolving]
  - Pain [Recovering/Resolving]
  - Cataract [Recovering/Resolving]
  - Monoparesis [Recovering/Resolving]
  - Gait disturbance [Recovering/Resolving]
  - Deafness [Recovering/Resolving]
  - Motor dysfunction [Recovering/Resolving]
  - Hypokinesia [Recovering/Resolving]
  - Paresis [Recovering/Resolving]

NARRATIVE: CASE EVENT DATE: 201503
